FAERS Safety Report 20598069 (Version 2)
Quarter: 2022Q1

REPORT INFORMATION
  Report Type: Spontaneous
  Country: JP (occurrence: JP)
  Receive Date: 20220315
  Receipt Date: 20220318
  Transmission Date: 20220423
  Serious: Yes (Hospitalization)
  Sender: FDA-Public Use
  Company Number: JP-PFIZER INC-202200377305

PATIENT
  Age: 78 Year
  Sex: Female
  Weight: 50 kg

DRUGS (21)
  1. BAZEDOXIFENE ACETATE [Suspect]
     Active Substance: BAZEDOXIFENE ACETATE
     Dosage: 20 MG
     Route: 048
  2. CELECOXIB [Suspect]
     Active Substance: CELECOXIB
     Dosage: 200 MG
     Route: 048
  3. PREGABALIN [Suspect]
     Active Substance: PREGABALIN
     Dosage: 150 MG
     Route: 048
  4. SPIRONOLACTONE [Suspect]
     Active Substance: SPIRONOLACTONE
     Dosage: 25 MG
     Route: 048
  5. REBAMIPIDE [Suspect]
     Active Substance: REBAMIPIDE
     Dosage: 300 MG
     Route: 048
  6. MAGNESIUM OXIDE [Suspect]
     Active Substance: MAGNESIUM OXIDE
     Dosage: 750 MG
     Route: 048
  7. ELDECALCITOL [Suspect]
     Active Substance: ELDECALCITOL
     Dosage: 0.75 UG
     Route: 048
  8. TRAMADOL [Suspect]
     Active Substance: TRAMADOL
     Dosage: 20 MG
     Route: 048
  9. LOXOPROFEN [Suspect]
     Active Substance: LOXOPROFEN
     Dosage: 180 MG
     Route: 048
  10. SIMVASTATIN [Suspect]
     Active Substance: SIMVASTATIN
     Dosage: 5 MG
     Route: 048
  11. TELMISARTAN [Suspect]
     Active Substance: TELMISARTAN
     Dosage: 20 MG
     Route: 048
  12. DULOXETINE [Suspect]
     Active Substance: DULOXETINE
     Dosage: 20 MG
     Route: 048
  13. SUVOREXANT [Suspect]
     Active Substance: SUVOREXANT
     Dosage: 15 MG
     Route: 048
  14. BETAHISTINE MESILATE [Suspect]
     Active Substance: BETAHISTINE MESILATE
     Dosage: 18 MG
     Route: 048
  15. FEBUXOSTAT [Suspect]
     Active Substance: FEBUXOSTAT
     Dosage: 20 MG
     Route: 048
  16. FUROSEMIDE [Suspect]
     Active Substance: FUROSEMIDE
     Dosage: 20 MG
     Route: 048
  17. VONOPRAZAN [Suspect]
     Active Substance: VONOPRAZAN
     Dosage: 20 MG
     Route: 048
  18. FERROUS CITRATE [Suspect]
     Active Substance: FERROUS CITRATE
     Dosage: 50 MG
     Route: 048
  19. SHAKUYAKUKANZOTO [Suspect]
     Active Substance: HERBALS
     Dosage: 2.5 G
     Route: 048
  20. MAGNESIUM CITRATE [Suspect]
     Active Substance: MAGNESIUM CITRATE
     Dosage: 50 G
     Route: 048
  21. SODIUM PICOSULFATE [Suspect]
     Active Substance: SODIUM PICOSULFATE
     Dosage: 10 ML
     Route: 048

REACTIONS (2)
  - Hypercalcaemia [Recovered/Resolved]
  - Hypermagnesaemia [Recovered/Resolved]
